FAERS Safety Report 25070350 (Version 1)
Quarter: 2025Q1

REPORT INFORMATION
  Report Type: Spontaneous
  Country: FR (occurrence: FR)
  Receive Date: 20250312
  Receipt Date: 20250312
  Transmission Date: 20250409
  Serious: Yes (Hospitalization)
  Sender: PFIZER
  Company Number: None

PATIENT
  Age: 49 Year
  Sex: Male
  Weight: 84 kg

DRUGS (13)
  1. CYTARABINE [Suspect]
     Active Substance: CYTARABINE
     Indication: Testis cancer
     Dosage: D0
     Route: 037
     Dates: start: 20250203, end: 20250203
  2. CYTARABINE [Suspect]
     Active Substance: CYTARABINE
     Dosage: D1 TO D6
     Route: 042
     Dates: start: 20250204, end: 20250210
  3. CYTARABINE [Suspect]
     Active Substance: CYTARABINE
     Dosage: D21
     Route: 037
     Dates: start: 20250224, end: 20250224
  4. DAUNORUBICIN [Suspect]
     Active Substance: DAUNORUBICIN
     Indication: Testis cancer
     Dosage: D1 TO D3
     Dates: start: 20250204, end: 20250206
  5. METHOTREXATE [Suspect]
     Active Substance: METHOTREXATE
     Indication: Testis cancer
     Dosage: D0
     Route: 037
     Dates: start: 20250203, end: 20250203
  6. METHOTREXATE [Suspect]
     Active Substance: METHOTREXATE
     Dosage: D21
     Route: 037
     Dates: start: 20250224, end: 20250224
  7. VITAMIN K1 [Concomitant]
     Active Substance: PHYTONADIONE
     Indication: Vitamin supplementation
     Dosage: MONDAY WEDNESDAY AND FRIDAY
     Route: 048
     Dates: start: 20250204, end: 20250223
  8. VALACYCLOVIR HYDROCHLORIDE [Concomitant]
     Active Substance: VALACYCLOVIR HYDROCHLORIDE
     Indication: Antiviral prophylaxis
     Dosage: FREQ:12 H; ONGOING
     Dates: start: 20250203
  9. METOCLOPRAMIDE HYDROCHLORIDE [Concomitant]
     Active Substance: METOCLOPRAMIDE HYDROCHLORIDE
     Indication: Prophylaxis of nausea and vomiting
     Dosage: 1 TO 3  PER DAY
     Route: 048
     Dates: start: 20250206, end: 20250213
  10. ONDANSETRON [Concomitant]
     Active Substance: ONDANSETRON
     Indication: Prophylaxis of nausea and vomiting
     Dosage: 1 TO 2 PER DAY
     Route: 048
     Dates: start: 20250207, end: 20250211
  11. PANTOPRAZOLE [Concomitant]
     Active Substance: PANTOPRAZOLE
     Dosage: 40 MG, 1X/DAY
     Route: 042
     Dates: start: 20250210, end: 20250224
  12. POSACONAZOLE [Concomitant]
     Active Substance: POSACONAZOLE
     Indication: Antifungal prophylaxis
     Dosage: 300 MG, 1X/DAY
     Route: 048
     Dates: start: 20250211, end: 20250214
  13. POSACONAZOLE [Concomitant]
     Active Substance: POSACONAZOLE
     Dosage: 400 MG, 1X/DAY
     Route: 048
     Dates: start: 20250215, end: 20250223

REACTIONS (2)
  - Erythema [Recovering/Resolving]
  - Off label use [Unknown]

NARRATIVE: CASE EVENT DATE: 20250203
